FAERS Safety Report 9004967 (Version 1)
Quarter: 2013Q1

REPORT INFORMATION
  Report Type: Spontaneous
  Country: US (occurrence: US)
  Receive Date: 20130109
  Receipt Date: 20130109
  Transmission Date: 20140127
  Serious: Yes (Hospitalization)
  Sender: FDA-Public Use
  Company Number: US-BAYER-2013-001437

PATIENT
  Age: 13 Year
  Sex: Female
  Weight: 88 kg

DRUGS (22)
  1. OCELLA [Suspect]
  2. GLUCOPHAGE [Concomitant]
     Dosage: 500 MG, BID WITH MEALS
  3. SYNTHROID [Concomitant]
     Dosage: 50 ?G, DAILY
  4. ZOLOFT [Concomitant]
     Dosage: 25 MG, DAILY
  5. GABAPENTIN [Concomitant]
     Dosage: 300 MG, TID
  6. METRONIDAZOLE [Concomitant]
     Dosage: 500 MG, BID FOR 10 DAYS
  7. PENICILLIN VK [Concomitant]
     Dosage: 250 MG 2 TABLETS, QID
  8. AMITRIPTYLINE HCL [Concomitant]
     Dosage: ? TABLET FOR 3 DAYS THEN TAKE 1 AT BEDTIME
  9. CHLORDIAZEPOXIDE W/CLIDINIUM [Concomitant]
     Dosage: 1 CAPSULE 3 TIMES A DAY
  10. PANTOPRAZOLE SODIUM [Concomitant]
     Dosage: 40 MG, DAILY
  11. PANTOPRAZOLE SODIUM [Concomitant]
     Dosage: 40 MG, DAILY
  12. HYDROXYZINE [Concomitant]
     Indication: NAUSEA
     Dosage: 50 MG, EVERY 6 HOURS IF NEEDED
  13. HYDROXYZINE [Concomitant]
     Indication: PAIN
  14. HYDROCODONE W/ACETAMINOPHEN [Concomitant]
     Indication: PAIN
     Dosage: 7.5-500MG, 1 EVERY 6 HOURS
  15. ENTOCORT EC [Concomitant]
     Dosage: 3 MG, 3 DAILY
  16. CYPROHEPTADINE [Concomitant]
     Dosage: 4 MG, DAILY
  17. METHSCOPOLAMINE BROMIDE [Concomitant]
     Dosage: 2.5 MG, UNK
  18. HYOSCYAMINE [Concomitant]
     Indication: MUSCLE SPASMS
     Dosage: 0.125 MG,1 Q4HR AS NEEDED
  19. PERIACTIN [Concomitant]
  20. NEURONTIN [Concomitant]
  21. LIBRAX [Concomitant]
  22. PROTONIX [Concomitant]

REACTIONS (1)
  - Pulmonary embolism [None]
